FAERS Safety Report 10382286 (Version 1)
Quarter: 2014Q3

REPORT INFORMATION
  Report Type: Spontaneous
  Country: FR (occurrence: None)
  Receive Date: 20140811
  Receipt Date: 20140811
  Transmission Date: 20150326
  Serious: Yes (Other)
  Sender: FDA-Public Use
  Company Number: AUR-APL-2014-08462

PATIENT
  Age: 7 Year
  Sex: Female

DRUGS (4)
  1. AMOXICILLIN. [Suspect]
     Active Substance: AMOXICILLIN
     Indication: NASOPHARYNGITIS
     Route: 048
     Dates: start: 2014
  2. RHINOTROPHYL (ETHANOLAMINE TENOATE, FRAMYCETIN SULFATE) [Concomitant]
  3. DAFALGAN (HELICIDINE) [Concomitant]
  4. ADVIL (MEFENAMIC ACID) [Concomitant]
     Active Substance: MEFENAMIC ACID

REACTIONS (7)
  - Lip swelling [None]
  - Incorrect dose administered [None]
  - Glossodynia [None]
  - Product solubility abnormal [None]
  - Acne [None]
  - Product formulation issue [None]
  - Pruritus [None]

NARRATIVE: CASE EVENT DATE: 20131213
